FAERS Safety Report 7122461-X (Version None)
Quarter: 2010Q4

REPORT INFORMATION
  Report Type: 
  Country: None (occurrence: None)
  Receive Date: 20101124
  Receipt Date: 20101110
  Transmission Date: 20110411
  Serious: Yes (Disabling)
  Sender: FDA-Public Use
  Company Number: US-MERCK-1010USA03509

PATIENT
  Age: 68 Year
  Sex: Female

DRUGS (1)
  1. FOSAMAX [Suspect]
     Indication: OSTEOPENIA
     Route: 048
     Dates: start: 19960101, end: 20080705

REACTIONS (4)
  - ADVERSE EVENT [None]
  - BONE DENSITY DECREASED [None]
  - FEMUR FRACTURE [None]
  - VITAMIN D DEFICIENCY [None]
